FAERS Safety Report 25448879 (Version 4)
Quarter: 2025Q3

REPORT INFORMATION
  Report Type: Spontaneous
  Country: US (occurrence: US)
  Receive Date: 20250618
  Receipt Date: 20250710
  Transmission Date: 20251020
  Serious: No
  Sender: ELI LILLY AND COMPANY
  Company Number: US-ELI_LILLY_AND_COMPANY-US202506003872

PATIENT
  Age: 78 Year
  Sex: Female

DRUGS (7)
  1. HUMALOG [Suspect]
     Active Substance: INSULIN LISPRO
     Indication: Product used for unknown indication
     Dosage: 25 U, DAILY
     Route: 065
  2. HUMALOG [Suspect]
     Active Substance: INSULIN LISPRO
     Indication: Product used for unknown indication
     Dosage: 25 U, DAILY
     Route: 065
  3. HUMALOG [Suspect]
     Active Substance: INSULIN LISPRO
     Dosage: 25 U, DAILY
     Route: 065
     Dates: start: 20250531
  4. HUMALOG [Suspect]
     Active Substance: INSULIN LISPRO
     Dosage: 25 U, DAILY
     Route: 065
     Dates: start: 20250531
  5. HUMALOG [Suspect]
     Active Substance: INSULIN LISPRO
     Dosage: 25 U, DAILY
     Route: 065
     Dates: start: 20250531
  6. HUMALOG [Suspect]
     Active Substance: INSULIN LISPRO
     Dosage: 25 U, DAILY
     Route: 065
  7. HUMALOG [Suspect]
     Active Substance: INSULIN LISPRO
     Dosage: 25 U, DAILY
     Route: 065

REACTIONS (7)
  - Gait disturbance [Unknown]
  - Musculoskeletal discomfort [Unknown]
  - Incorrect dose administered [Unknown]
  - Blood glucose increased [Unknown]
  - Drug ineffective [Unknown]
  - Injury associated with device [Unknown]
  - Sneezing [Unknown]
